FAERS Safety Report 9114975 (Version 1)
Quarter: 2013Q1

REPORT INFORMATION
  Report Type: Spontaneous
  Country: US (occurrence: None)
  Receive Date: 20130220
  Receipt Date: 20130220
  Transmission Date: 20140127
  Serious: No
  Sender: FDA-Public Use
  Company Number: None

PATIENT
  Age: 36 Year
  Sex: Male
  Weight: 76.4 kg

DRUGS (3)
  1. FORTESTA [Suspect]
     Indication: HYPOGONADISM
     Dosage: 30 MG DAILY TOPICAL
     Route: 061
     Dates: start: 20120926, end: 20130214
  2. CLARITON [Concomitant]
  3. PRAVASTATIN [Concomitant]

REACTIONS (1)
  - Application site exfoliation [None]
